FAERS Safety Report 24290614 (Version 1)
Quarter: 2024Q3

REPORT INFORMATION
  Report Type: Spontaneous
  Country: US (occurrence: US)
  Receive Date: 20240906
  Receipt Date: 20240906
  Transmission Date: 20241017
  Serious: No
  Sender: AMNEAL
  Company Number: US-AMNEAL PHARMACEUTICALS-2024-AMRX-02571

PATIENT
  Sex: Male

DRUGS (1)
  1. RELEUKO [Suspect]
     Active Substance: FILGRASTIM-AYOW
     Indication: Product used for unknown indication
     Dosage: 480MCG/0.8MG; INJECT 480MCG DAILY ON DAYS 2/3/4 AFTER CHEMOTHERAPY
     Route: 058

REACTIONS (1)
  - General physical health deterioration [Unknown]
